FAERS Safety Report 11789420 (Version 1)
Quarter: 2015Q4

REPORT INFORMATION
  Report Type: Spontaneous
  Country: US (occurrence: None)
  Receive Date: 20151130
  Receipt Date: 20151130
  Transmission Date: 20160305
  Serious: Yes (Other)
  Sender: FDA-Public Use
  Company Number: None

PATIENT
  Age: 82 Year
  Sex: Female
  Weight: 50.35 kg

DRUGS (6)
  1. NAPROXEN SODIUM. [Concomitant]
     Active Substance: NAPROXEN SODIUM
  2. ALLOPURINOL. [Concomitant]
     Active Substance: ALLOPURINOL
  3. ONDANSETRON [Concomitant]
     Active Substance: ONDANSETRON
  4. PIRFENIDONE [Suspect]
     Active Substance: PIRFENIDONE
     Indication: IDIOPATHIC PULMONARY FIBROSIS
     Dosage: 2 CAPSULES BID ORAL
     Route: 048
     Dates: start: 20150601, end: 20151006
  5. SIMVASTATIN. [Concomitant]
     Active Substance: SIMVASTATIN
  6. PREDNISONE. [Concomitant]
     Active Substance: PREDNISONE

REACTIONS (4)
  - Nausea [None]
  - Hypertension [None]
  - Insomnia [None]
  - Therapy cessation [None]

NARRATIVE: CASE EVENT DATE: 20151006
